FAERS Safety Report 7292557-0 (Version None)
Quarter: 2011Q1

REPORT INFORMATION
  Report Type: 
  Country: None (occurrence: None)
  Receive Date: 20110215
  Receipt Date: 20110204
  Transmission Date: 20110831
  Serious: Yes (Other)
  Sender: FDA-Public Use
  Company Number: FR-JNJFOC-20110202221

PATIENT
  Age: 54 Year
  Sex: Male

DRUGS (2)
  1. REMICADE [Suspect]
     Indication: PRODUCT USED FOR UNKNOWN INDICATION
     Dosage: 6 DOSES
     Route: 042
  2. REMICADE [Suspect]
     Route: 042

REACTIONS (5)
  - ERYTHEMA [None]
  - DYSPNOEA [None]
  - EYE INFLAMMATION [None]
  - PALPITATIONS [None]
  - INFUSION RELATED REACTION [None]
